FAERS Safety Report 6386947-8 (Version None)
Quarter: 2009Q4

REPORT INFORMATION
  Report Type: 
  Country: None (occurrence: None)
  Receive Date: 20091001
  Receipt Date: 20091001
  Transmission Date: 20100525
  Serious: Yes (Hospitalization)
  Sender: FDA-Public Use
  Company Number: None

PATIENT
  Sex: Female
  Weight: 90 kg

DRUGS (2)
  1. CAPECITABINE 2000 MG BID D1-D14 ORAL [Suspect]
     Indication: COLON CANCER
     Dosage: CAPECITABINE 2000 MG BID D1-D14 ORAL
     Route: 048
     Dates: start: 20090129, end: 20090420
  2. LAPATINIB 1250MG QD D1-D21 ORAL [Suspect]
     Dosage: LAPATINIB 1250MG QD D1-D21 ORAL
     Route: 048
     Dates: start: 20090129, end: 20090420

REACTIONS (8)
  - ANAEMIA [None]
  - HEPATIC NEOPLASM MALIGNANT [None]
  - HYPERGLYCAEMIA [None]
  - HYPOALBUMINAEMIA [None]
  - INFECTION [None]
  - OEDEMA PERIPHERAL [None]
  - PNEUMONIA [None]
  - PULMONARY EMBOLISM [None]
